FAERS Safety Report 9152848 (Version 1)
Quarter: 2013Q1

REPORT INFORMATION
  Report Type: Spontaneous
  Country: DE (occurrence: DE)
  Receive Date: 20130309
  Receipt Date: 20130309
  Transmission Date: 20140127
  Serious: Yes (Other)
  Sender: FDA-Public Use
  Company Number: DE-UCBSA-079855

PATIENT
  Age: 61 Year
  Sex: Female

DRUGS (2)
  1. NEUPRO [Suspect]
     Indication: PARKINSON^S DISEASE
     Dosage: FOR 4 YEARS, FORM: PATCH
     Route: 062
  2. NEUPRO [Suspect]
     Indication: PARKINSON^S DISEASE
     Dosage: DOSE REDUCED
     Route: 062

REACTIONS (3)
  - Suicide attempt [Unknown]
  - Hallucination [Unknown]
  - Application site irritation [Unknown]
